FAERS Safety Report 17340183 (Version 1)
Quarter: 2020Q1

REPORT INFORMATION
  Report Type: Spontaneous
  Country: US (occurrence: US)
  Receive Date: 20200114
  Receipt Date: 20200114
  Transmission Date: 20200409
  Serious: Yes (Hospitalization)
  Sender: FDA-Public Use
  Company Number: None

PATIENT
  Age: 68 Year
  Sex: Female

DRUGS (16)
  1. WARFARIN [Concomitant]
     Active Substance: WARFARIN
  2. ATORVASTATIN [Concomitant]
     Active Substance: ATORVASTATIN
  3. ALBUTEROL. [Concomitant]
     Active Substance: ALBUTEROL
  4. VITAMIN D3 [Concomitant]
     Active Substance: CHOLECALCIFEROL
  5. LASIX [Concomitant]
     Active Substance: FUROSEMIDE
  6. LIDOCAINE PATCH [Concomitant]
     Active Substance: LIDOCAINE
  7. METFORMIN [Concomitant]
     Active Substance: METFORMIN HYDROCHLORIDE
  8. POTASSIUM CHLORIDE. [Concomitant]
     Active Substance: POTASSIUM CHLORIDE
  9. OMEPRAZOLE. [Concomitant]
     Active Substance: OMEPRAZOLE
  10. AMBRISENTAN 10 MG TABLETS 30/BO: 10MG [Suspect]
     Active Substance: AMBRISENTAN
     Indication: PULMONARY ARTERIAL HYPERTENSION
     Route: 048
     Dates: start: 201806
  11. HUMULIN N [Concomitant]
     Active Substance: INSULIN HUMAN
  12. FERROUS SULFATE. [Concomitant]
     Active Substance: FERROUS SULFATE
  13. STIOLTO RESPIMAT [Concomitant]
     Active Substance: OLODATEROL HYDROCHLORIDE\TIOTROPIUM BROMIDE MONOHYDRATE
  14. NORCO [Concomitant]
     Active Substance: ACETAMINOPHEN\HYDROCODONE BITARTRATE
  15. MAGNESIUM OXIDE. [Concomitant]
     Active Substance: MAGNESIUM OXIDE
  16. SOTALOL. [Concomitant]
     Active Substance: SOTALOL

REACTIONS (6)
  - Condition aggravated [None]
  - Weight decreased [None]
  - Dyspnoea [None]
  - Dizziness [None]
  - Joint swelling [None]
  - Cardiac failure [None]

NARRATIVE: CASE EVENT DATE: 20191218
